FAERS Safety Report 5050004-3 (Version None)
Quarter: 2006Q2

REPORT INFORMATION
  Report Type: 
  Country: None (occurrence: None)
  Receive Date: 20060601
  Receipt Date: 20060214
  Transmission Date: 20061013
  Serious: No
  Sender: FDA-Public Use
  Company Number: US200602003038

PATIENT
  Age: 46 Year
  Sex: Female
  Weight: 72.6 kg

DRUGS (1)
  1. CYMBALTA [Suspect]
     Indication: DEPRESSION
     Dosage: 20 MG, 2/D
     Dates: start: 20060101

REACTIONS (6)
  - BLADDER DISCOMFORT [None]
  - CONSTIPATION [None]
  - DRY MOUTH [None]
  - HEADACHE [None]
  - STOMACH DISCOMFORT [None]
  - URINARY HESITATION [None]
